FAERS Safety Report 6983102-5 (Version None)
Quarter: 2010Q3

REPORT INFORMATION
  Report Type: 
  Country: None (occurrence: None)
  Receive Date: 20100914
  Receipt Date: 20100615
  Transmission Date: 20110219
  Serious: No
  Sender: FDA-Public Use
  Company Number: US-PFIZER INC-2010075538

PATIENT
  Sex: Female
  Weight: 57 kg

DRUGS (3)
  1. LYRICA [Suspect]
     Indication: FIBROMYALGIA
     Dosage: 75 MG, 2X/DAY
     Route: 048
     Dates: start: 20100201, end: 20100201
  2. VICODIN [Concomitant]
     Indication: FIBROMYALGIA
     Dosage: UNK, AS NEEDED
  3. GLYCERYL TRINITRATE [Concomitant]
     Indication: CHEST PAIN
     Dosage: 1X/DAY

REACTIONS (1)
  - CHEST PAIN [None]
